FAERS Safety Report 6460384-X (Version None)
Quarter: 2009Q4

REPORT INFORMATION
  Report Type: 
  Country: None (occurrence: None)
  Receive Date: 20091123
  Receipt Date: 20091110
  Transmission Date: 20100525
  Serious: Yes (Hospitalization)
  Sender: FDA-Public Use
  Company Number: B0605762A

PATIENT
  Age: 43 Year
  Sex: Male

DRUGS (4)
  1. CHLORAMBUCIL (FORMULATION UNKNOWN) (GENERIC) (CHLORAMBUCIL) [Suspect]
     Indication: CHEMOTHERAPY
     Dosage: CYCLIC
  2. VINBLASTINE SULFATE [Suspect]
     Indication: CHEMOTHERAPY
     Dosage: CYCLIC
  3. PROCARBAZINE HYDROCHLORIDE [Suspect]
     Indication: CHEMOTHERAPY
     Dosage: CYCLIC
  4. PREDNISONE [Suspect]
     Indication: CHEMOTHERAPY
     Dosage: CYLIC

REACTIONS (5)
  - DIALYSIS [None]
  - HYPOTENSION [None]
  - RESPIRATORY FAILURE [None]
  - SEPSIS [None]
  - STREPTOCOCCAL SEPSIS [None]
